FAERS Safety Report 5688270-3 (Version None)
Quarter: 2008Q1

REPORT INFORMATION
  Report Type: 
  Country: None (occurrence: None)
  Receive Date: 20080331
  Receipt Date: 20080319
  Transmission Date: 20080703
  Serious: Yes (Hospitalization, Other)
  Sender: FDA-Public Use
  Company Number: US-JNJFOC-20071109786

PATIENT
  Sex: Male
  Weight: 82.1 kg

DRUGS (17)
  1. DURAGESIC-100 [Suspect]
     Route: 062
  2. DURAGESIC-100 [Suspect]
     Dosage: 2 X 100UG PATCHES AND 1 X 50 UG PATCH
     Route: 062
  3. DURAGESIC-100 [Suspect]
     Dosage: 4 X 100UG PATCHES
     Route: 062
  4. DURAGESIC-100 [Suspect]
     Indication: PAIN
     Route: 062
  5. FENTANYL TRANSDERMAL SYSTEM [Suspect]
     Indication: PAIN
     Route: 062
  6. FENTANYL TRANSDERMAL SYSTEM [Suspect]
     Indication: PAIN
     Route: 062
  7. NARCOTIC ANALGESICS [Suspect]
     Indication: PAIN
     Route: 048
  8. XANAX [Concomitant]
     Indication: ANXIETY
     Route: 048
  9. TRAZODONE HCL [Concomitant]
     Indication: SLEEP DISORDER
     Route: 048
  10. LEXAPRO [Concomitant]
     Indication: DEPRESSION
     Route: 048
  11. STELAZINE [Concomitant]
     Indication: ANXIETY
     Route: 048
  12. PANCREATIC ENZYMES [Concomitant]
     Indication: ENZYME SUPPLEMENTATION
     Route: 048
  13. PREVACID [Concomitant]
     Indication: GASTROOESOPHAGEAL REFLUX DISEASE
     Route: 048
  14. PHENERGAN HCL [Concomitant]
     Indication: NAUSEA
     Route: 054
  15. ASPIRIN [Concomitant]
     Indication: CARDIAC DISORDER
     Route: 048
  16. NITROGLYCERIN [Concomitant]
     Indication: CHEST PAIN
     Route: 060
  17. ATENOLOL [Concomitant]
     Route: 065

REACTIONS (12)
  - DIABETES MELLITUS [None]
  - INAPPROPRIATE SCHEDULE OF DRUG ADMINISTRATION [None]
  - INCORRECT DRUG ADMINISTRATION DURATION [None]
  - NAUSEA [None]
  - PALPITATIONS [None]
  - PANCREATIC DISORDER [None]
  - PANCREATITIS [None]
  - PANCREATITIS CHRONIC [None]
  - PHARMACEUTICAL PRODUCT COMPLAINT [None]
  - VOMITING [None]
  - WEIGHT DECREASED [None]
  - WITHDRAWAL SYNDROME [None]
